FAERS Safety Report 4833137-3 (Version None)
Quarter: 2005Q4

REPORT INFORMATION
  Report Type: 
  Country: None (occurrence: None)
  Receive Date: 20051117
  Receipt Date: 20051104
  Transmission Date: 20060501
  Serious: Yes (Other)
  Sender: FDA-Public Use
  Company Number: 2005151480

PATIENT
  Sex: Female

DRUGS (1)
  1. ZITHROMAX [Suspect]
     Indication: BACTERIAL INFECTION
     Dosage: 250 MG (250 MG,QD; INTERVAL; EVERY DAY); 500 MG (250 MG,QD; INTERVAL: EVERY DAY)
     Dates: start: 20051103, end: 20051103

REACTIONS (3)
  - DYSPHAGIA [None]
  - FACE OEDEMA [None]
  - LIP BLISTER [None]
